FAERS Safety Report 7945116-8 (Version None)
Quarter: 2011Q4

REPORT INFORMATION
  Report Type: 
  Country: None (occurrence: None)
  Receive Date: 20111129
  Receipt Date: 20111129
  Transmission Date: 20120403
  Serious: Yes (Other)
  Sender: FDA-Public Use
  Company Number: None

PATIENT

DRUGS (1)
  1. QVAR 40 [Suspect]
     Indication: ASTHMA
     Dosage: 2 PUFFS
     Route: 006
     Dates: start: 20090701, end: 20111128

REACTIONS (4)
  - ASTHMA [None]
  - PRODUCT PACKAGING QUANTITY ISSUE [None]
  - CONDITION AGGRAVATED [None]
  - DEVICE MALFUNCTION [None]
